FAERS Safety Report 4290267-5 (Version None)
Quarter: 2004Q1

REPORT INFORMATION
  Report Type: 
  Country: None (occurrence: None)
  Receive Date: 20040126
  Receipt Date: 20031020
  Transmission Date: 20041129
  Serious: No
  Sender: FDA-Public Use
  Company Number: USA030435074

PATIENT
  Age: 67 Year
  Sex: Female

DRUGS (4)
  1. FORTEO [Suspect]
     Dates: start: 20030401
  2. METHOTREXATE [Concomitant]
  3. FOLIC ACID [Concomitant]
  4. PRILOSEC [Concomitant]

REACTIONS (7)
  - ASTHENIA [None]
  - BALANCE DISORDER [None]
  - DIZZINESS [None]
  - HAIR COLOUR CHANGES [None]
  - INJECTION SITE PAIN [None]
  - MUSCLE CRAMP [None]
  - NERVOUSNESS [None]
